FAERS Safety Report 6990593-2 (Version None)
Quarter: 2010Q3

REPORT INFORMATION
  Report Type: 
  Country: None (occurrence: None)
  Receive Date: 20100916
  Receipt Date: 20100719
  Transmission Date: 20110219
  Serious: Yes (Hospitalization)
  Sender: FDA-Public Use
  Company Number: FR-PFIZER INC-2010089541

PATIENT
  Sex: Male

DRUGS (3)
  1. LYRICA [Suspect]
     Dosage: UNK
     Route: 048
  2. TRANXENE [Suspect]
     Route: 048
  3. AMITRIPTYLINE HCL [Suspect]
     Dosage: UNK
     Route: 048

REACTIONS (1)
  - WITHDRAWAL SYNDROME [None]
